FAERS Safety Report 4975478-5 (Version None)
Quarter: 2006Q2

REPORT INFORMATION
  Report Type: 
  Country: None (occurrence: None)
  Receive Date: 20060410
  Receipt Date: 20060331
  Transmission Date: 20061013
  Serious: Yes (Death, Other)
  Sender: FDA-Public Use
  Company Number: GB-2006-005656

PATIENT
  Age: 42 Year
  Sex: Female
  Weight: 71 kg

DRUGS (1)
  1. MIRENA [Suspect]
     Dosage: 20 UG/DAY, CONT, INTRA-UTERINE
     Route: 015
     Dates: start: 20030101

REACTIONS (14)
  - ABSCESS BACTERIAL [None]
  - ADRENAL MASS [None]
  - BETA HAEMOLYTIC STREPTOCOCCAL INFECTION [None]
  - DERMOID CYST OF OVARY [None]
  - GASTROENTERITIS [None]
  - GENERAL PHYSICAL HEALTH DETERIORATION [None]
  - GENITAL INFECTION FEMALE [None]
  - HAEMORRHAGIC OVARIAN CYST [None]
  - LUNG ABSCESS [None]
  - OVARIAN ABSCESS [None]
  - PELVIC INFLAMMATORY DISEASE [None]
  - PERITONITIS [None]
  - PULMONARY OEDEMA [None]
  - STREPTOCOCCAL SEPSIS [None]
